FAERS Safety Report 20568269 (Version 4)
Quarter: 2024Q2

REPORT INFORMATION
  Report Type: Spontaneous
  Country: JP (occurrence: JP)
  Receive Date: 20220308
  Receipt Date: 20240405
  Transmission Date: 20240715
  Serious: Yes (Other)
  Sender: FDA-Public Use
  Company Number: JP-BRISTOL-MYERS SQUIBB COMPANY-BMS-2022-034209

PATIENT
  Age: 82 Year
  Sex: Male
  Weight: 50 kg

DRUGS (2)
  1. YERVOY [Suspect]
     Active Substance: IPILIMUMAB
     Indication: Non-small cell lung cancer
     Dosage: UNK
     Dates: start: 20220129, end: 20220130
  2. OPDIVO [Suspect]
     Active Substance: NIVOLUMAB
     Indication: Non-small cell lung cancer
     Dosage: UNK
     Dates: start: 20220129, end: 20220130

REACTIONS (8)
  - Cytokine release syndrome [Unknown]
  - Hepatic function abnormal [Unknown]
  - Infusion related reaction [Unknown]
  - Pyrexia [Unknown]
  - COVID-19 [Unknown]
  - Non-small cell lung cancer [Unknown]
  - Pneumonitis [Unknown]
  - Immune-mediated adverse reaction [Unknown]

NARRATIVE: CASE EVENT DATE: 20220129
